FAERS Safety Report 18414895 (Version 1)
Quarter: 2020Q4

REPORT INFORMATION
  Report Type: Spontaneous
  Country: CN (occurrence: CN)
  Receive Date: 20201022
  Receipt Date: 20201022
  Transmission Date: 20210114
  Serious: Yes (Hospitalization, Other)
  Sender: FDA-Public Use
  Company Number: CN-GRANULES-CN-2020GRALIT00015

PATIENT
  Age: 4 Month
  Sex: Female

DRUGS (4)
  1. ACETAMINOPHEN. [Suspect]
     Active Substance: ACETAMINOPHEN
     Indication: PYREXIA
     Route: 065
  2. CALCIUM GLUCONATE. [Interacting]
     Active Substance: CALCIUM GLUCONATE
     Indication: URTICARIA
     Route: 065
  3. VITAMIN C [Interacting]
     Active Substance: ASCORBIC ACID
     Indication: URTICARIA
     Route: 065
  4. DESLORATADINE. [Interacting]
     Active Substance: DESLORATADINE
     Indication: URTICARIA
     Route: 065

REACTIONS (2)
  - Angioedema [Recovered/Resolved]
  - Urticaria [Recovered/Resolved]
